FAERS Safety Report 6433468-X (Version None)
Quarter: 2009Q4

REPORT INFORMATION
  Report Type: 
  Country: None (occurrence: None)
  Receive Date: 20091106
  Receipt Date: 20091106
  Transmission Date: 20100525
  Serious: Yes (Death)
  Sender: FDA-Public Use
  Company Number: None

PATIENT
  Age: 14 Year
  Sex: Male
  Weight: 77.1115 kg

DRUGS (1)
  1. ZOLOFT [Suspect]
     Indication: ANXIETY
     Dosage: 1/2 TAB FOR ONE WEEK DAILY PO; 1 TAB THEREAFTER DAILY
     Route: 048
     Dates: start: 20090911, end: 20090920

REACTIONS (2)
  - ACNE [None]
  - COMPLETED SUICIDE [None]
